FAERS Safety Report 4360216-X (Version None)
Quarter: 2004Q2

REPORT INFORMATION
  Report Type: 
  Country: None (occurrence: None)
  Receive Date: 20040513
  Receipt Date: 20040504
  Transmission Date: 20050107
  Serious: No
  Sender: FDA-Public Use
  Company Number: 2004-115694-NL

PATIENT
  Age: 37 Year
  Sex: Female

DRUGS (5)
  1. MIRTAZAPINE [Suspect]
     Indication: DEPRESSION
     Dosage: 15 MG ORAL
     Route: 048
     Dates: start: 20040402, end: 20040415
  2. MIRTAZAPINE [Suspect]
     Indication: INSOMNIA
     Dosage: 15 MG ORAL
     Route: 048
     Dates: start: 20040402, end: 20040415
  3. ALBUTEROL SULFATE [Concomitant]
  4. CHLORPROMAZINE [Concomitant]
  5. FLUOXETINE [Concomitant]

REACTIONS (1)
  - AGGRESSION [None]
